FAERS Safety Report 16579852 (Version 2)
Quarter: 2019Q3

REPORT INFORMATION
  Report Type: Spontaneous
  Country: DE (occurrence: DE)
  Receive Date: 20190716
  Receipt Date: 20190719
  Transmission Date: 20191004
  Serious: Yes (Other)
  Sender: FDA-Public Use
  Company Number: DE-PFIZER INC-2019297021

PATIENT
  Age: 12 Year
  Sex: Male

DRUGS (10)
  1. PREGABALIN. [Interacting]
     Active Substance: PREGABALIN
     Indication: LENNOX-GASTAUT SYNDROME
  2. PREGABALIN. [Suspect]
     Active Substance: PREGABALIN
     Indication: EPILEPSY
     Dosage: UNK
  3. FELBAMATE. [Interacting]
     Active Substance: FELBAMATE
     Indication: EPILEPSY
     Dosage: UNK
  4. FELBAMATE. [Interacting]
     Active Substance: FELBAMATE
     Indication: LENNOX-GASTAUT SYNDROME
  5. PHENOBARBITAL. [Interacting]
     Active Substance: PHENOBARBITAL
     Indication: EPILEPSY
     Dosage: UNK
  6. ETHOSUXIMIDE. [Interacting]
     Active Substance: ETHOSUXIMIDE
     Indication: EPILEPSY
     Dosage: UNK
  7. CLOBAZAM. [Interacting]
     Active Substance: CLOBAZAM
     Indication: LENNOX-GASTAUT SYNDROME
  8. PHENOBARBITAL. [Interacting]
     Active Substance: PHENOBARBITAL
     Indication: LENNOX-GASTAUT SYNDROME
  9. ETHOSUXIMIDE. [Interacting]
     Active Substance: ETHOSUXIMIDE
     Indication: LENNOX-GASTAUT SYNDROME
  10. CLOBAZAM. [Interacting]
     Active Substance: CLOBAZAM
     Indication: EPILEPSY
     Dosage: UNK

REACTIONS (7)
  - Withdrawal syndrome [Unknown]
  - Off label use [Unknown]
  - Condition aggravated [Unknown]
  - Benzodiazepine drug level decreased [Unknown]
  - Seizure [Unknown]
  - Drug interaction [Unknown]
  - Product use issue [Unknown]
